FAERS Safety Report 6375701-9 (Version None)
Quarter: 2009Q3

REPORT INFORMATION
  Report Type: 
  Country: None (occurrence: None)
  Receive Date: 20090921
  Receipt Date: 20090910
  Transmission Date: 20100115
  Serious: Yes (Hospitalization)
  Sender: FDA-Public Use
  Company Number: 2009AL002409

PATIENT
  Age: 61 Year
  Sex: Female

DRUGS (6)
  1. DIGOXIN [Suspect]
     Dosage: 0.125MG, DAILY, PO
     Route: 048
  2. TOPROL-XL [Concomitant]
  3. LEXAPRO [Concomitant]
  4. XANAX [Concomitant]
  5. MULTI-VITAMIN [Concomitant]
  6. FOLATE ACID [Concomitant]

REACTIONS (23)
  - ANXIETY [None]
  - ATRIAL FIBRILLATION [None]
  - CHOLELITHIASIS [None]
  - COLONIC POLYP [None]
  - DIVERTICULUM [None]
  - DUODENITIS [None]
  - DYSPHAGIA [None]
  - DYSPNOEA EXERTIONAL [None]
  - ECCHYMOSIS [None]
  - ECONOMIC PROBLEM [None]
  - EMOTIONAL DISORDER [None]
  - GASTRITIS EROSIVE [None]
  - GASTROOESOPHAGEAL REFLUX DISEASE [None]
  - HYPERTENSION [None]
  - HYPOAESTHESIA [None]
  - ILL-DEFINED DISORDER [None]
  - INJURY [None]
  - OESOPHAGEAL STENOSIS [None]
  - OESOPHAGEAL ULCER [None]
  - PALPITATIONS [None]
  - PERIPHERAL COLDNESS [None]
  - SUPRAVENTRICULAR TACHYCARDIA [None]
  - SURGERY [None]
